FAERS Safety Report 22206622 (Version 1)
Quarter: 2023Q2

REPORT INFORMATION
  Report Type: Spontaneous
  Country: US (occurrence: None)
  Receive Date: 20230412
  Receipt Date: 20230412
  Transmission Date: 20230722
  Serious: No
  Sender: FDA-Public Use
  Company Number: None

PATIENT
  Sex: Female

DRUGS (12)
  1. VIGABATRIN [Suspect]
     Active Substance: VIGABATRIN
     Indication: Epilepsy
     Dosage: FREQUENCY : TWICE A DAY;?
     Route: 048
  2. EVEROLIMUS [Concomitant]
     Active Substance: EVEROLIMUS
  3. CLONAZEPAM [Concomitant]
     Active Substance: CLONAZEPAM
  4. LANSOPRAZOLE ODT [Concomitant]
  5. DIASTAT PEDIATRIC [Concomitant]
  6. ONDANSETRON HYDROCHLORIDE [Concomitant]
     Active Substance: ONDANSETRON HYDROCHLORIDE
  7. CLOBAZAM [Concomitant]
     Active Substance: CLOBAZAM
  8. ALBUTEROL [Concomitant]
     Active Substance: ALBUTEROL
  9. NITROFURANTOIN [Concomitant]
     Active Substance: NITROFURANTOIN
  10. KEPPRA [Concomitant]
     Active Substance: LEVETIRACETAM
  11. OXYBUTYNIN CHLORIDE [Concomitant]
     Active Substance: OXYBUTYNIN CHLORIDE
  12. TAMSULOSIN HYDROCHLORIDE [Concomitant]
     Active Substance: TAMSULOSIN HYDROCHLORIDE

REACTIONS (2)
  - Nephrolithiasis [None]
  - Speech disorder [None]
